FAERS Safety Report 9410565 (Version 1)
Quarter: 2013Q4

REPORT INFORMATION
  Report Type: Spontaneous
  Country: US (occurrence: None)
  Receive Date: 20130718
  Receipt Date: 20130718
  Transmission Date: 20140711
  Serious: Yes (Hospitalization)
  Sender: FDA-Public Use
  Company Number: None

PATIENT
  Age: 71 Year
  Sex: Male
  Weight: 105.2 kg

DRUGS (2)
  1. CYTOXAN [Suspect]
     Indication: METASTATIC MALIGNANT MELANOMA
     Dosage: 700MG, PO Q 3WEEKS D1 ?05-20-2013
     Route: 048
  2. IFILIMUMAB [Suspect]
     Indication: METASTATIC MALIGNANT MELANOMA
     Dosage: 1052MG IV Q 3WEEKS D3?5/22/2013
     Route: 042

REACTIONS (1)
  - Pulmonary embolism [None]
